FAERS Safety Report 12382164 (Version 1)
Quarter: 2016Q2

REPORT INFORMATION
  Report Type: Spontaneous
  Country: ES (occurrence: ES)
  Receive Date: 20160518
  Receipt Date: 20160518
  Transmission Date: 20160815
  Serious: Yes (Hospitalization)
  Sender: FDA-Public Use
  Company Number: ES-BRACCO-001418

PATIENT
  Age: 74 Year
  Sex: Female

DRUGS (1)
  1. IOPAMIRO [Suspect]
     Active Substance: IOPAMIDOL
     Indication: ARTERIOGRAM
     Route: 013
     Dates: start: 20160422, end: 20160422

REACTIONS (5)
  - Depressed level of consciousness [Recovered/Resolved]
  - Aphasia [Recovered/Resolved]
  - Facial paralysis [Recovered/Resolved]
  - Hemiplegia [Recovered/Resolved]
  - Neurotoxicity [Recovered/Resolved]

NARRATIVE: CASE EVENT DATE: 20160422
